FAERS Safety Report 7916543-X (Version None)
Quarter: 2011Q4

REPORT INFORMATION
  Report Type: 
  Country: None (occurrence: None)
  Receive Date: 20111116
  Receipt Date: 20111104
  Transmission Date: 20120403
  Serious: Yes (Hospitalization)
  Sender: FDA-Public Use
  Company Number: US-JNJFOC-20111103256

PATIENT
  Sex: Male
  Weight: 142.43 kg

DRUGS (8)
  1. FOLIC ACID [Concomitant]
     Indication: VITAMIN B12 DEFICIENCY
  2. METHOTREXATE [Concomitant]
     Indication: RHEUMATOID ARTHRITIS
  3. CYMBALTA [Concomitant]
     Indication: PAIN
     Route: 048
     Dates: start: 20060101
  4. HYDROCODONE BITARTRATE [Concomitant]
     Indication: PAIN
     Route: 048
  5. REMICADE [Suspect]
     Indication: RHEUMATOID ARTHRITIS
     Route: 042
     Dates: start: 20070101
  6. MORPHINE [Suspect]
     Indication: PAIN
  7. CYMBALTA [Concomitant]
     Indication: DEPRESSION
     Route: 048
     Dates: start: 20060101
  8. FLEXERIL [Concomitant]
     Indication: MUSCLE SPASMS
     Route: 048
     Dates: start: 20000101, end: 20100101

REACTIONS (10)
  - SUBDURAL HAEMATOMA [None]
  - GASTROINTESTINAL ANASTOMOTIC LEAK [None]
  - THERAPEUTIC RESPONSE DELAYED [None]
  - TRANSIENT ISCHAEMIC ATTACK [None]
  - NAUSEA [None]
  - BLOOD PRESSURE INCREASED [None]
  - DRUG EFFECT DECREASED [None]
  - DYSPNOEA [None]
  - RHEUMATOID ARTHRITIS [None]
  - SEPSIS [None]
